FAERS Safety Report 24812507 (Version 1)
Quarter: 2025Q1

REPORT INFORMATION
  Report Type: Report from Study
  Country: US (occurrence: US)
  Receive Date: 20250106
  Receipt Date: 20250106
  Transmission Date: 20250408
  Serious: Yes (Other)
  Sender: ABBVIE
  Company Number: US-ABBVIE-6073030

PATIENT
  Sex: Male

DRUGS (1)
  1. RINVOQ [Suspect]
     Active Substance: UPADACITINIB
     Indication: Rheumatoid arthritis
     Route: 048
     Dates: start: 20230102

REACTIONS (4)
  - Diverticulum intestinal [Recovering/Resolving]
  - Irritable bowel syndrome [Recovering/Resolving]
  - Arthralgia [Recovering/Resolving]
  - Gastrointestinal disorder [Recovering/Resolving]
